FAERS Safety Report 18416790 (Version 1)
Quarter: 2020Q4

REPORT INFORMATION
  Report Type: Report from Study
  Country: US (occurrence: US)
  Receive Date: 20201022
  Receipt Date: 20201022
  Transmission Date: 20210114
  Serious: Yes (Other)
  Sender: FDA-Public Use
  Company Number: US-BRISTOL-MYERS SQUIBB COMPANY-BMS-2020-086686

PATIENT
  Age: 84 Year
  Sex: Female
  Weight: 45.36 kg

DRUGS (1)
  1. APIXABAN [Suspect]
     Active Substance: APIXABAN
     Indication: STRESS CARDIOMYOPATHY
     Dosage: UNK
     Route: 065
     Dates: start: 2019

REACTIONS (3)
  - Intentional product use issue [Unknown]
  - Blindness unilateral [Unknown]
  - Cardiac valve disease [Unknown]
